FAERS Safety Report 17644309 (Version 3)
Quarter: 2020Q3

REPORT INFORMATION
  Report Type: Spontaneous
  Country: US (occurrence: US)
  Receive Date: 20200408
  Receipt Date: 20200803
  Transmission Date: 20201102
  Serious: Yes (Hospitalization)
  Sender: FDA-Public Use
  Company Number: US-PFIZER INC-2020142307

PATIENT
  Age: 58 Year
  Sex: Female

DRUGS (1)
  1. IBRANCE [Suspect]
     Active Substance: PALBOCICLIB
     Indication: BREAST CANCER FEMALE
     Dosage: 125 MG, CYCLIC (ONCE DAILY FOR 3 WEEKS ON, THEN 1 WEEK OFF)
     Route: 048
     Dates: start: 202003

REACTIONS (7)
  - Headache [Unknown]
  - Pyrexia [Unknown]
  - Stomatitis [Unknown]
  - SARS-CoV-2 test negative [Unknown]
  - Product dose omission issue [Unknown]
  - Rhinorrhoea [Unknown]
  - Candida infection [Unknown]

NARRATIVE: CASE EVENT DATE: 2020
